FAERS Safety Report 8273912-9 (Version None)
Quarter: 2012Q2

REPORT INFORMATION
  Report Type: 
  Country: None (occurrence: None)
  Receive Date: 20120409
  Receipt Date: 20120326
  Transmission Date: 20120825
  Serious: Yes (Death)
  Sender: FDA-Public Use
  Company Number: 2012MA003984

PATIENT
  Age: 10 Month
  Sex: Male

DRUGS (3)
  1. OXYCODONE HCL [Suspect]
     Dosage: 60 MG;;
  2. ACETAMINOPHEN AND HYDROCODONE BITARTRATE [Suspect]
  3. CARISOPRODOL [Suspect]
     Dosage: 650 MG;

REACTIONS (3)
  - EXPOSURE DURING BREAST FEEDING [None]
  - DRUG LEVEL ABOVE THERAPEUTIC [None]
  - CARDIAC ARREST [None]
